FAERS Safety Report 8235083-4 (Version None)
Quarter: 2012Q1

REPORT INFORMATION
  Report Type: 
  Country: None (occurrence: None)
  Receive Date: 20120322
  Receipt Date: 20120313
  Transmission Date: 20120608
  Serious: Yes (Hospitalization, Other)
  Sender: FDA-Public Use
  Company Number: 2011SP056190

PATIENT
  Age: 36 Year
  Sex: Female
  Weight: 87.5442 kg

DRUGS (2)
  1. NUVARING [Suspect]
     Indication: CONTRACEPTION
     Dates: start: 20070101, end: 20081216
  2. NUVARING [Suspect]
     Indication: DYSMENORRHOEA
     Dates: start: 20070101, end: 20081216

REACTIONS (7)
  - RENAL VEIN THROMBOSIS [None]
  - PULMONARY EMBOLISM [None]
  - SYSTEMIC LUPUS ERYTHEMATOSUS [None]
  - OEDEMA PERIPHERAL [None]
  - INJURY [None]
  - HYPERTENSION [None]
  - THROMBOSIS [None]
